FAERS Safety Report 18409869 (Version 1)
Quarter: 2020Q4

REPORT INFORMATION
  Report Type: Spontaneous
  Country: US (occurrence: US)
  Receive Date: 20201021
  Receipt Date: 20201021
  Transmission Date: 20210114
  Serious: Yes (Other)
  Sender: FDA-Public Use
  Company Number: None

PATIENT
  Age: 37 Year
  Sex: Female

DRUGS (3)
  1. OVIDREL [Concomitant]
     Active Substance: CHORIOGONADOTROPIN ALFA
  2. ENDOMETRIN [Suspect]
     Active Substance: PROGESTERONE
     Indication: INFERTILITY FEMALE
     Route: 067
     Dates: start: 20200612
  3. DOXYCYCL HYC [Concomitant]

REACTIONS (3)
  - Foetal exposure during pregnancy [None]
  - Abortion spontaneous [None]
  - Maternal exposure during pregnancy [None]

NARRATIVE: CASE EVENT DATE: 20200816
